FAERS Safety Report 6307379-4 (Version None)
Quarter: 2009Q3

REPORT INFORMATION
  Report Type: 
  Country: None (occurrence: None)
  Receive Date: 20090810
  Receipt Date: 20090729
  Transmission Date: 20100115
  Serious: Yes (Hospitalization)
  Sender: FDA-Public Use
  Company Number: 2009AL000155

PATIENT
  Age: 65 Year
  Sex: Male

DRUGS (29)
  1. DIGOXIN [Suspect]
     Dosage: 0.25MG, DAILY, PO
     Route: 048
  2. ASPIRIN [Concomitant]
  3. TERAZOSIN HCL [Concomitant]
  4. MECLIZINE [Concomitant]
  5. VALSARTAN [Concomitant]
  6. FUROSEMIDE [Concomitant]
  7. BUPROPION [Concomitant]
  8. OMEPRAZOLE [Concomitant]
  9. POTASSIUM CHLORIDE [Concomitant]
  10. ADVIL [Concomitant]
  11. LEVOTHYROXINE [Concomitant]
  12. LIPITOR [Concomitant]
  13. VASOTEC [Concomitant]
  14. SYNTHROID [Concomitant]
  15. PRILOSEC [Concomitant]
  16. IMDUR [Concomitant]
  17. LISINOPRIL [Concomitant]
  18. ALDACTONE [Concomitant]
  19. COLACE [Concomitant]
  20. COREG [Concomitant]
  21. NITROGLYCERIN [Concomitant]
  22. COUMADIN [Concomitant]
  23. CENTRUM SILVER [Concomitant]
  24. PROTONIX [Concomitant]
  25. TOPROL-XL [Concomitant]
  26. SPIRONOLACTONE [Concomitant]
  27. ATACAND [Concomitant]
  28. WELLBUTRIN [Concomitant]
  29. AVELOX [Concomitant]

REACTIONS (30)
  - ABDOMINAL PAIN UPPER [None]
  - ASTHENIA [None]
  - ATRIAL FIBRILLATION [None]
  - BACK PAIN [None]
  - CARDIAC FAILURE CONGESTIVE [None]
  - CHEST PAIN [None]
  - CONSTIPATION [None]
  - COUGH [None]
  - DIZZINESS [None]
  - DYSPEPSIA [None]
  - DYSPNOEA [None]
  - FALL [None]
  - FOREIGN BODY TRAUMA [None]
  - HYPERHIDROSIS [None]
  - HYPOAESTHESIA [None]
  - HYPOTENSION [None]
  - ISCHAEMIC CARDIOMYOPATHY [None]
  - LEFT VENTRICULAR DYSFUNCTION [None]
  - LEUKOCYTOSIS [None]
  - MULTIPLE INJURIES [None]
  - MYOCARDIAL INFARCTION [None]
  - NAUSEA [None]
  - PALPITATIONS [None]
  - PNEUMONIA [None]
  - RENAL FAILURE [None]
  - RENAL FAILURE ACUTE [None]
  - THERAPEUTIC AGENT TOXICITY [None]
  - URINARY INCONTINENCE [None]
  - WEIGHT DECREASED [None]
  - WEIGHT INCREASED [None]
